FAERS Safety Report 16467861 (Version 1)
Quarter: 2019Q2

REPORT INFORMATION
  Report Type: Spontaneous
  Country: GB (occurrence: GB)
  Receive Date: 20190624
  Receipt Date: 20190624
  Transmission Date: 20190711
  Serious: Yes (Disabling, Other)
  Sender: FDA-Public Use
  Company Number: GB-ACCORD-134704

PATIENT
  Age: 68 Year
  Sex: Male
  Weight: 110 kg

DRUGS (5)
  1. ASPIRIN. [Concomitant]
     Active Substance: ASPIRIN
     Dosage: WITH OR AFTER FOOD
     Dates: start: 20180615
  2. ATENOLOL/ATENOLOL HYDROCHLORIDE [Concomitant]
     Dates: start: 20180615
  3. SIMVASTATIN. [Concomitant]
     Active Substance: SIMVASTATIN
     Dates: start: 20190416
  4. ESOMEPRAZOLE. [Concomitant]
     Active Substance: ESOMEPRAZOLE MAGNESIUM
     Dosage: 30 MINUTES BEFORE FOOD
     Dates: start: 20180615
  5. ATORVASTATIN/ATORVASTATIN CALCIUM [Suspect]
     Active Substance: ATORVASTATIN CALCIUM
     Indication: PRODUCT USED FOR UNKNOWN INDICATION
     Dosage: ALSO 10MG TABLET FROM 19-MAY-2019(DRUG WITHDRAWN)
     Dates: start: 20180615, end: 20190416

REACTIONS (1)
  - Hallucination, auditory [Recovering/Resolving]

NARRATIVE: CASE EVENT DATE: 20190519
